FAERS Safety Report 8433290 (Version 2)
Quarter: 2012Q4

REPORT INFORMATION
  Report Type: 
  Country: FR (occurrence: FR)
  Receive Date: 20120229
  Receipt Date: 20121017
  Transmission Date: 20130627
  Serious: Yes (Hospitalization, Other)
  Sender: FDA-Public Use
  Company Number: FR-ABBOTT-11P-056-0883187-00

PATIENT
  Age: 45 Year
  Sex: Male

DRUGS (3)
  1. HUMIRA 40 MG/ 0.8 ML PRE-FILLED SYRINGE [Suspect]
     Indication: ANKYLOSING SPONDYLITIS
     Dates: start: 201005, end: 20111107
  2. VEXOL [Concomitant]
     Indication: PRODUCT USED FOR UNKNOWN INDICATION
  3. COSOPT [Concomitant]
     Indication: PRODUCT USED FOR UNKNOWN INDICATION

REACTIONS (7)
  - Autoimmune thrombocytopenia [Recovered/Resolved]
  - Deep vein thrombosis [Recovered/Resolved]
  - Circulating anticoagulant positive [Not Recovered/Not Resolved]
  - Leukocytosis [Unknown]
  - C-reactive protein increased [Unknown]
  - Unevaluable event [Unknown]
  - Cardiolipin antibody positive [Unknown]
